FAERS Safety Report 8442083-8 (Version None)
Quarter: 2012Q2

REPORT INFORMATION
  Report Type: 
  Country: None (occurrence: None)
  Receive Date: 20120615
  Receipt Date: 20120312
  Transmission Date: 20120825
  Serious: No
  Sender: FDA-Public Use
  Company Number: US-NOVEN-12US004267

PATIENT
  Sex: Female

DRUGS (2)
  1. DAYTRANA [Suspect]
     Indication: PRODUCT USED FOR UNKNOWN INDICATION
     Dosage: 10 MG, UNK
     Route: 062
  2. DAYTRANA [Suspect]
     Dosage: 15 MG, UNK
     Route: 062

REACTIONS (2)
  - MOOD SWINGS [None]
  - HEADACHE [None]
